FAERS Safety Report 8236910-7 (Version None)
Quarter: 2012Q1

REPORT INFORMATION
  Report Type: 
  Country: None (occurrence: None)
  Receive Date: 20120327
  Receipt Date: 20120323
  Transmission Date: 20120608
  Serious: Yes (Disabling)
  Sender: FDA-Public Use
  Company Number: ES-BAYER-2012-028897

PATIENT
  Sex: Male

DRUGS (8)
  1. NICARDIPINE HCL [Concomitant]
     Indication: HYPERTENSION
     Dosage: DAILY DOSE 60 MG
     Route: 048
     Dates: start: 20110307
  2. EMPORTAL [Concomitant]
     Indication: CONSTIPATION
     Dosage: 40 CC,UNK
     Route: 048
     Dates: start: 20111128
  3. PROPRANOLOL [Concomitant]
     Indication: HAEMORRHAGE PROPHYLAXIS
     Dosage: DAILY DOSE 60 MG
     Route: 048
     Dates: start: 20090508
  4. NEXAVAR [Suspect]
     Indication: HEPATIC NEOPLASM MALIGNANT
  5. SERC [Concomitant]
     Indication: DIZZINESS
     Dosage: DAILY DOSE 32 MG
     Route: 048
     Dates: start: 20110711
  6. ZOLPIDEM [Concomitant]
     Indication: INSOMNIA
     Dosage: DAILY DOSE 10 MG
     Route: 048
     Dates: start: 20110601
  7. ALMAX [Concomitant]
     Indication: GASTROOESOPHAGEAL REFLUX DISEASE
     Dosage: DAILY DOSE 500 MG
     Route: 048
     Dates: start: 20110307
  8. INSULIN [Concomitant]
     Indication: DIABETES MELLITUS
     Dosage: DAILY DOSE 30 MG
     Route: 048
     Dates: start: 20111024

REACTIONS (1)
  - SPEECH DISORDER [None]
